FAERS Safety Report 15804815 (Version 1)
Quarter: 2019Q1

REPORT INFORMATION
  Report Type: Report from Study
  Country: None (occurrence: BR)
  Receive Date: 20190109
  Receipt Date: 20190109
  Transmission Date: 20190417
  Serious: Yes (Other)
  Sender: FDA-Public Use
  Company Number: BR-ABBVIE-19K-020-2617107-00

PATIENT
  Age: 63 Year
  Sex: Female

DRUGS (1)
  1. HUMIRA [Suspect]
     Active Substance: ADALIMUMAB
     Indication: RHEUMATOID ARTHRITIS
     Route: 058
     Dates: start: 20150701

REACTIONS (10)
  - Blindness unilateral [Unknown]
  - Lung neoplasm malignant [Recovered/Resolved]
  - Pain [Recovered/Resolved]
  - Purulent discharge [Unknown]
  - Vitreous floaters [Not Recovered/Not Resolved]
  - Vitreous floaters [Recovered/Resolved]
  - Dyspnoea [Recovered/Resolved]
  - Vision blurred [Unknown]
  - Toxoplasmosis [Unknown]
  - Cough [Recovered/Resolved]

NARRATIVE: CASE EVENT DATE: 20180601
